FAERS Safety Report 25607490 (Version 1)
Quarter: 2025Q3

REPORT INFORMATION
  Report Type: Spontaneous
  Country: CA (occurrence: CA)
  Receive Date: 20250725
  Receipt Date: 20250725
  Transmission Date: 20251021
  Serious: Yes (Death, Other)
  Sender: JAZZ
  Company Number: CA-JAZZ PHARMACEUTICALS-2025-CA-017738

PATIENT
  Age: 53 Year
  Sex: Male

DRUGS (2)
  1. RYLAZE [Suspect]
     Active Substance: ASPARAGINASE ERWINIA CHRYSANTHEMI (RECOMBINANT)-RYWN
     Indication: B-cell type acute leukaemia
  2. RYLAZE [Suspect]
     Active Substance: ASPARAGINASE ERWINIA CHRYSANTHEMI (RECOMBINANT)-RYWN

REACTIONS (5)
  - Death [Fatal]
  - Cytomegalovirus viraemia [Unknown]
  - Multiple organ dysfunction syndrome [Unknown]
  - Chemotherapeutic drug level below therapeutic [Unknown]
  - Off label use [Unknown]
